FAERS Safety Report 16303643 (Version 1)
Quarter: 2019Q2

REPORT INFORMATION
  Report Type: Report from Study
  Country: None (occurrence: CA)
  Receive Date: 20190513
  Receipt Date: 20190513
  Transmission Date: 20190711
  Serious: Yes (Other)
  Sender: FDA-Public Use
  Company Number: CA-ABBVIE-19K-028-2779154-00

PATIENT
  Sex: Female

DRUGS (1)
  1. HUMIRA [Suspect]
     Active Substance: ADALIMUMAB
     Indication: RHEUMATOID ARTHRITIS
     Route: 058
     Dates: start: 20060407

REACTIONS (4)
  - Mass [Not Recovered/Not Resolved]
  - Chest pain [Not Recovered/Not Resolved]
  - Infarction [Not Recovered/Not Resolved]
  - Pain [Not Recovered/Not Resolved]
